FAERS Safety Report 9334452 (Version 2)
Quarter: 2013Q4

REPORT INFORMATION
  Report Type: Spontaneous
  Country: US (occurrence: US)
  Receive Date: 20130606
  Receipt Date: 20131008
  Transmission Date: 20140711
  Serious: No
  Sender: FDA-Public Use
  Company Number: US-AMGEN-USASP2013033943

PATIENT
  Age: 69 Year
  Sex: Male
  Weight: 99.32 kg

DRUGS (7)
  1. PROLIA [Suspect]
     Indication: OSTEOPOROSIS
     Dosage: 60 ML, Q6MO
     Route: 058
     Dates: start: 201303
  2. LISINOPRIL/HYDROCHLOROTHIAZIDE [Concomitant]
  3. LOVASTATIN [Concomitant]
  4. SERTRALINE [Concomitant]
  5. TRAZODONE [Concomitant]
  6. SPIRIVA [Concomitant]
  7. HYDROCODONE [Concomitant]

REACTIONS (2)
  - Arthralgia [Unknown]
  - Myalgia [Unknown]
